FAERS Safety Report 13137497 (Version 4)
Quarter: 2018Q2

REPORT INFORMATION
  Report Type: Spontaneous
  Country: US (occurrence: US)
  Receive Date: 20170123
  Receipt Date: 20180619
  Transmission Date: 20180711
  Serious: Yes (Other)
  Sender: FDA-Public Use
  Company Number: US-ASTRAZENECA-2017SE03313

PATIENT
  Age: 19170 Day
  Sex: Male
  Weight: 95.3 kg

DRUGS (21)
  1. NEXIUM [Suspect]
     Active Substance: ESOMEPRAZOLE MAGNESIUM
     Indication: GASTROOESOPHAGEAL REFLUX DISEASE
     Route: 065
     Dates: start: 2009
  2. NEXIUM 24HR [Suspect]
     Active Substance: ESOMEPRAZOLE MAGNESIUM
     Indication: GASTROOESOPHAGEAL REFLUX DISEASE
     Route: 048
     Dates: start: 2017
  3. PRILOSEC [Suspect]
     Active Substance: OMEPRAZOLE MAGNESIUM
     Indication: GASTROOESOPHAGEAL REFLUX DISEASE
     Route: 065
     Dates: start: 2001, end: 2009
  4. TRAMADOL. [Concomitant]
     Active Substance: TRAMADOL
     Dosage: 50.0MG UNKNOWN
     Route: 048
     Dates: start: 20110607
  5. ESTRADIOL. [Concomitant]
     Active Substance: ESTRADIOL
     Dosage: 1.0MG UNKNOWN
     Route: 048
     Dates: start: 20110701
  6. TAGAMET HB [Concomitant]
     Active Substance: CIMETIDINE
  7. NEXIUM [Suspect]
     Active Substance: ESOMEPRAZOLE MAGNESIUM
     Indication: GASTROOESOPHAGEAL REFLUX DISEASE
     Route: 048
     Dates: start: 201210, end: 201303
  8. AZITHROMYCIN ANHYDROUS. [Concomitant]
     Active Substance: AZITHROMYCIN ANHYDROUS
  9. CIPROFLOXACIN. [Concomitant]
     Active Substance: CIPROFLOXACIN
  10. PRILOSEC [Suspect]
     Active Substance: OMEPRAZOLE MAGNESIUM
     Indication: GASTROOESOPHAGEAL REFLUX DISEASE
     Route: 048
     Dates: start: 2001
  11. DEXILANT [Suspect]
     Active Substance: DEXLANSOPRAZOLE
     Indication: GASTROOESOPHAGEAL REFLUX DISEASE
     Route: 065
     Dates: start: 2011, end: 2013
  12. ZANTAC [Concomitant]
     Active Substance: RANITIDINE HYDROCHLORIDE
  13. RANITIDINE. [Concomitant]
     Active Substance: RANITIDINE
     Dosage: 150.0MG UNKNOWN
     Route: 048
     Dates: start: 20100727
  14. GABAPENTIN. [Concomitant]
     Active Substance: GABAPENTIN
     Dosage: 600.0MG UNKNOWN
     Route: 048
     Dates: start: 20100816
  15. PROMETHAZINE [Concomitant]
     Active Substance: PROMETHAZINE\PROMETHAZINE HYDROCHLORIDE
     Dosage: 12.5MG UNKNOWN
     Route: 048
     Dates: start: 20110607
  16. LISINOPRIL. [Concomitant]
     Active Substance: LISINOPRIL
  17. PEPCID [Concomitant]
     Active Substance: FAMOTIDINE
  18. TUMS [Concomitant]
     Active Substance: CALCIUM CARBONATE
  19. MELOXICAM. [Concomitant]
     Active Substance: MELOXICAM
  20. AMOXICILLIN. [Concomitant]
     Active Substance: AMOXICILLIN
  21. NEXIUM [Suspect]
     Active Substance: ESOMEPRAZOLE MAGNESIUM
     Indication: GASTROOESOPHAGEAL REFLUX DISEASE
     Route: 048
     Dates: start: 20101122

REACTIONS (2)
  - Renal injury [Unknown]
  - Chronic kidney disease [Unknown]

NARRATIVE: CASE EVENT DATE: 20120823
